FAERS Safety Report 14557961 (Version 4)
Quarter: 2018Q2

REPORT INFORMATION
  Report Type: Report from Study
  Country: None (occurrence: US)
  Receive Date: 20180221
  Receipt Date: 20180621
  Transmission Date: 20180711
  Serious: Yes (Other)
  Sender: FDA-Public Use
  Company Number: US-ABBVIE-18K-163-2257922-00

PATIENT
  Age: 29 Year
  Sex: Female

DRUGS (2)
  1. HUMIRA [Suspect]
     Active Substance: ADALIMUMAB
     Indication: RHEUMATOID ARTHRITIS
     Route: 058
     Dates: end: 201803
  2. METHOTREXATE. [Concomitant]
     Active Substance: METHOTREXATE
     Indication: PRODUCT USED FOR UNKNOWN INDICATION

REACTIONS (19)
  - Wisdom teeth removal [Unknown]
  - Rheumatoid arthritis [Unknown]
  - Skin discolouration [Unknown]
  - Joint range of motion decreased [Unknown]
  - Feeling hot [Unknown]
  - Blister [Unknown]
  - Erythema [Unknown]
  - Sensitivity to weather change [Unknown]
  - Joint warmth [Unknown]
  - Peripheral swelling [Unknown]
  - Medical device site joint infection [Unknown]
  - Contusion [Unknown]
  - Psoriasis [Unknown]
  - Joint swelling [Unknown]
  - Arthralgia [Not Recovered/Not Resolved]
  - Knee arthroplasty [Unknown]
  - Arthropathy [Unknown]
  - Pain in extremity [Unknown]
  - Device loosening [Unknown]

NARRATIVE: CASE EVENT DATE: 2015
